FAERS Safety Report 5531626-X (Version None)
Quarter: 2007Q4

REPORT INFORMATION
  Report Type: 
  Country: None (occurrence: None)
  Receive Date: 20071203
  Receipt Date: 20071121
  Transmission Date: 20080405
  Serious: Yes (Hospitalization, Other)
  Sender: FDA-Public Use
  Company Number: US-ASTRAZENECA-2007UW05724

PATIENT
  Age: 34 Year
  Sex: Female
  Weight: 56.8 kg

DRUGS (2)
  1. SEROQUEL [Suspect]
     Indication: INSOMNIA
     Dosage: 25 TO 75 MG
     Route: 048
     Dates: start: 20011119
  2. SEROQUEL [Suspect]
     Indication: AFFECTIVE DISORDER
     Dosage: 25 TO 75 MG
     Route: 048
     Dates: start: 20011119

REACTIONS (3)
  - DIABETIC KETOACIDOSIS [None]
  - HOSPITALISATION [None]
  - TYPE 2 DIABETES MELLITUS [None]
